FAERS Safety Report 7796995-9 (Version None)
Quarter: 2011Q4

REPORT INFORMATION
  Report Type: 
  Country: None (occurrence: None)
  Receive Date: 20111005
  Receipt Date: 20111005
  Transmission Date: 20120403
  Serious: Yes (Other)
  Sender: FDA-Public Use
  Company Number: None

PATIENT
  Sex: Female
  Weight: 58.059 kg

DRUGS (1)
  1. TOPIRAMATE [Suspect]
     Indication: AFFECTIVE DISORDER
     Dosage: ONE TABLET
     Route: 048

REACTIONS (3)
  - AMNESIA [None]
  - SPEECH DISORDER [None]
  - DEMENTIA ALZHEIMER'S TYPE [None]
